FAERS Safety Report 4927424-8 (Version None)
Quarter: 2006Q1

REPORT INFORMATION
  Report Type: 
  Country: None (occurrence: None)
  Receive Date: 20060228
  Receipt Date: 20051219
  Transmission Date: 20060701
  Serious: No
  Sender: FDA-Public Use
  Company Number: US-GLAXOSMITHKLINE-A0586302A

PATIENT
  Age: 34 Year
  Sex: Male

DRUGS (2)
  1. IMITREX [Suspect]
     Indication: CLUSTER HEADACHE
     Dosage: 6MG AS REQUIRED
     Route: 058
     Dates: start: 20051217
  2. NO CONCURRENT MEDICATION [Concomitant]

REACTIONS (1)
  - DIARRHOEA [None]
